FAERS Safety Report 9784759 (Version 2)
Quarter: 2014Q1

REPORT INFORMATION
  Report Type: Spontaneous
  Country: GB (occurrence: GB)
  Receive Date: 20131227
  Receipt Date: 20140210
  Transmission Date: 20141002
  Serious: Yes (Other)
  Sender: FDA-Public Use
  Company Number: GB-009507513-1312GBR010751

PATIENT
  Age: 17 Year
  Sex: Female

DRUGS (2)
  1. NEXPLANON [Suspect]
     Indication: CONTRACEPTION
     Dosage: UNK
     Route: 059
     Dates: start: 20110707, end: 20131202
  2. OMEPRAZOLE [Concomitant]
     Indication: ABDOMINAL DISCOMFORT
     Dosage: 20 MG, OD
     Route: 048
     Dates: start: 201310, end: 201311

REACTIONS (2)
  - Abortion spontaneous [Unknown]
  - Unintended pregnancy [Recovered/Resolved]
